FAERS Safety Report 19996140 (Version 4)
Quarter: 2021Q4

REPORT INFORMATION
  Report Type: Report from Study
  Country: JP (occurrence: US)
  Receive Date: 20211026
  Receipt Date: 20211208
  Transmission Date: 20220303
  Serious: Yes (Hospitalization, Other)
  Sender: FDA-Public Use
  Company Number: JP-ASTELLAS-2021JP017718

PATIENT
  Age: 58 Year
  Sex: Male

DRUGS (5)
  1. ENFORTUMAB VEDOTIN [Suspect]
     Active Substance: ENFORTUMAB VEDOTIN
     Indication: Transitional cell carcinoma
     Route: 041
     Dates: start: 202107
  2. ENFORTUMAB VEDOTIN [Suspect]
     Active Substance: ENFORTUMAB VEDOTIN
     Dosage: UNK, UNK, UNKNOWN FREQ.
     Route: 041
  3. ENFORTUMAB VEDOTIN [Suspect]
     Active Substance: ENFORTUMAB VEDOTIN
     Dosage: 1.0 MG/KG, UNKNOWN FREQ.
     Route: 041
     Dates: start: 20211123
  4. KEYTRUDA [Suspect]
     Active Substance: PEMBROLIZUMAB
     Indication: Transitional cell carcinoma
     Dosage: UNK UNK, EVERY 6 WEEKS
     Route: 041
     Dates: end: 202109
  5. Lopemin [Concomitant]
     Indication: Diarrhoea
     Dosage: 4 TABLETS/DAY, UNKNOWN FREQ.
     Route: 065
     Dates: start: 20211014

REACTIONS (11)
  - Diarrhoea [Recovered/Resolved]
  - Ileus paralytic [Recovered/Resolved]
  - Neuropathy peripheral [Recovering/Resolving]
  - Lung disorder [Recovering/Resolving]
  - Alopecia [Not Recovered/Not Resolved]
  - Pruritus [Recovered/Resolved]
  - Pyrexia [Recovered/Resolved]
  - Rash [Recovering/Resolving]
  - Dehydration [Recovered/Resolved]
  - Constipation [Recovered/Resolved]
  - Myelosuppression [Recovered/Resolved]

NARRATIVE: CASE EVENT DATE: 20211001
